FAERS Safety Report 6294417-0 (Version None)
Quarter: 2009Q3

REPORT INFORMATION
  Report Type: 
  Country: None (occurrence: None)
  Receive Date: 20090803
  Receipt Date: 20090720
  Transmission Date: 20100115
  Serious: Yes (Other)
  Sender: FDA-Public Use
  Company Number: US-ROCHE-645226

PATIENT
  Age: 52 Year
  Sex: Female

DRUGS (3)
  1. BONIVA [Suspect]
     Route: 065
     Dates: start: 20090301
  2. CELLCEPT [Suspect]
     Indication: MYASTHENIA GRAVIS
     Route: 048
     Dates: start: 20070101
  3. MYCOPHENOLATE MOFETIL [Suspect]
     Indication: MYASTHENIA GRAVIS
     Route: 048
     Dates: start: 20090706

REACTIONS (3)
  - MUSCULAR WEAKNESS [None]
  - SKIN CANCER [None]
  - VISUAL IMPAIRMENT [None]
